FAERS Safety Report 23915400 (Version 4)
Quarter: 2024Q3

REPORT INFORMATION
  Report Type: Spontaneous
  Country: US (occurrence: US)
  Receive Date: 20240529
  Receipt Date: 20240827
  Transmission Date: 20241017
  Serious: No
  Sender: AMGEN
  Company Number: US-AMGEN-USASP2024105195

PATIENT
  Age: 77 Year
  Sex: Female

DRUGS (2)
  1. REPATHA [Suspect]
     Active Substance: EVOLOCUMAB
     Indication: Coronary artery disease
     Dosage: 420 MILLIGRAM, Q4WK
     Route: 058
  2. REPATHA [Suspect]
     Active Substance: EVOLOCUMAB
     Indication: Hyperlipidaemia

REACTIONS (4)
  - Accidental exposure to product [Unknown]
  - Drug dose omission by device [Unknown]
  - Injection site pain [Unknown]
  - Device use error [Unknown]

NARRATIVE: CASE EVENT DATE: 20240424
